FAERS Safety Report 25260279 (Version 1)
Quarter: 2025Q2

REPORT INFORMATION
  Report Type: Spontaneous
  Country: US (occurrence: None)
  Receive Date: 20250501
  Receipt Date: 20250501
  Transmission Date: 20250717
  Serious: Yes (Hospitalization)
  Sender: FDA-CTU
  Company Number: None

PATIENT
  Age: 77 Year
  Sex: Male

DRUGS (1)
  1. APIXABAN [Suspect]
     Active Substance: APIXABAN
     Indication: Atrial fibrillation

REACTIONS (12)
  - Upper gastrointestinal haemorrhage [None]
  - Skeletal injury [None]
  - Wound [None]
  - Faeces discoloured [None]
  - Haemoglobin decreased [None]
  - Transfusion [None]
  - Gastrointestinal ulcer [None]
  - Gastric ulcer [None]
  - Therapy interrupted [None]
  - Wound [None]
  - Disease risk factor [None]
  - Amputation [None]

NARRATIVE: CASE EVENT DATE: 20250420
